FAERS Safety Report 4949921-1 (Version None)
Quarter: 2006Q1

REPORT INFORMATION
  Report Type: 
  Country: None (occurrence: None)
  Receive Date: 20060315
  Receipt Date: 20060302
  Transmission Date: 20060701
  Serious: Yes (Death, Hospitalization, Other)
  Sender: FDA-Public Use
  Company Number: US200512000824

PATIENT
  Age: 61 Year
  Sex: Female
  Weight: 93 kg

DRUGS (2)
  1. XIGRIS [Suspect]
     Indication: SEPSIS
     Dosage: 24 UG/KG/HR, INTRAVENOUS
     Route: 042
     Dates: start: 20051115
  2. ASA (ASPIRIN (ACETYLSALICYLIC ACID) [Concomitant]

REACTIONS (7)
  - BRAIN OEDEMA [None]
  - DISEASE PROGRESSION [None]
  - GASTROINTESTINAL HAEMORRHAGE [None]
  - GENERAL PHYSICAL HEALTH DETERIORATION [None]
  - INTERNATIONAL NORMALISED RATIO ABNORMAL [None]
  - MULTI-ORGAN FAILURE [None]
  - SEPTIC SHOCK [None]
